FAERS Safety Report 22617915 (Version 2)
Quarter: 2023Q2

REPORT INFORMATION
  Report Type: Report from Study
  Country: CA (occurrence: CA)
  Receive Date: 20230620
  Receipt Date: 20230626
  Transmission Date: 20230722
  Serious: Yes (Other)
  Sender: FDA-Public Use
  Company Number: CA-UCBSA-2023017365

PATIENT
  Sex: Female

DRUGS (5)
  1. CERTOLIZUMAB PEGOL [Suspect]
     Active Substance: CERTOLIZUMAB PEGOL
     Indication: Rheumatoid arthritis
     Dosage: 400 MILLIGRAM, EV 2 WEEKS(QOW)
     Route: 058
     Dates: start: 20230403, end: 2023
  2. CERTOLIZUMAB PEGOL [Suspect]
     Active Substance: CERTOLIZUMAB PEGOL
     Dosage: 200 MILLIGRAM, EV 2 WEEKS(QOW)
     Route: 058
     Dates: start: 2023, end: 2023
  3. RINVOQ [Suspect]
     Active Substance: UPADACITINIB
     Indication: Product used for unknown indication
     Dosage: UNK
  4. DEX ANTIHIST [Concomitant]
     Indication: Product used for unknown indication
     Dosage: UNK
  5. ABX [Concomitant]
     Indication: Dental care
     Dosage: UNK, FROM 6TH JUNE TO 14TH JUNE
     Dates: start: 20230606

REACTIONS (5)
  - Rheumatoid arthritis [Not Recovered/Not Resolved]
  - Acne [Unknown]
  - Gastrooesophageal reflux disease [Not Recovered/Not Resolved]
  - Dental care [Unknown]
  - Drug ineffective [Unknown]
